FAERS Safety Report 19684419 (Version 1)
Quarter: 2021Q3

REPORT INFORMATION
  Report Type: Spontaneous
  Country: US (occurrence: US)
  Receive Date: 20210810
  Receipt Date: 20210810
  Transmission Date: 20211014
  Serious: Yes (Death, Life-Threatening, Hospitalization, Disabling, Other)
  Sender: FDA-Public Use
  Company Number: None

PATIENT
  Age: 95 Year
  Sex: Male
  Weight: 63 kg

DRUGS (1)
  1. IMBRUVICA [Suspect]
     Active Substance: IBRUTINIB
     Indication: WALDENSTROM^S MACROGLOBULINAEMIA
     Dosage: ?          QUANTITY:1 TABLET(S);?
     Route: 048
     Dates: start: 20210526, end: 20210607

REACTIONS (14)
  - Dyspnoea [None]
  - Blood immunoglobulin M increased [None]
  - Bedridden [None]
  - Pneumonitis [None]
  - Drug interaction [None]
  - Interstitial lung disease [None]
  - Atrial fibrillation [None]
  - Dysstasia [None]
  - Blood viscosity increased [None]
  - Fatigue [None]
  - Asthenia [None]
  - Movement disorder [None]
  - Feeling abnormal [None]
  - Laboratory test abnormal [None]

NARRATIVE: CASE EVENT DATE: 20210604
